FAERS Safety Report 11317246 (Version 1)
Quarter: 2015Q3

REPORT INFORMATION
  Report Type: Spontaneous
  Country: US (occurrence: US)
  Receive Date: 20150728
  Receipt Date: 20150728
  Transmission Date: 20151125
  Serious: No
  Sender: FDA-Public Use
  Company Number: US-PFIZER INC-2015246438

PATIENT
  Age: 55 Year
  Sex: Female
  Weight: 64 kg

DRUGS (2)
  1. LYRICA [Suspect]
     Active Substance: PREGABALIN
     Dosage: 150 MG, 2X/DAY
     Route: 048
     Dates: start: 20141205, end: 20150712
  2. LYRICA [Suspect]
     Active Substance: PREGABALIN
     Indication: NEURALGIA
     Dosage: 75 MG, 2X/DAY
     Route: 048
     Dates: start: 2014, end: 20141205

REACTIONS (8)
  - Nausea [Recovering/Resolving]
  - Heart rate increased [Recovering/Resolving]
  - Feeding disorder [Recovered/Resolved]
  - Abdominal discomfort [Recovering/Resolving]
  - Feeling abnormal [Recovering/Resolving]
  - Somnolence [Unknown]
  - Asthenia [Recovering/Resolving]
  - Drug withdrawal syndrome [Unknown]

NARRATIVE: CASE EVENT DATE: 20150715
